FAERS Safety Report 9016700 (Version 1)
Quarter: 2013Q1

REPORT INFORMATION
  Report Type: Spontaneous
  Country: US (occurrence: US)
  Receive Date: 20130116
  Receipt Date: 20130116
  Transmission Date: 20140127
  Serious: Yes (Hospitalization)
  Sender: FDA-Public Use
  Company Number: US-BAYER-2013-003887

PATIENT
  Age: 32 Year
  Sex: Female
  Weight: 86.17 kg

DRUGS (7)
  1. BEYAZ [Suspect]
  2. YAZ [Suspect]
  3. FLUOXETINE [Concomitant]
     Dosage: 40 MG, DAILY
     Route: 048
  4. BUSPIRONE [Concomitant]
     Dosage: 10 MG, DAILY
     Route: 048
  5. PERCOCET [Concomitant]
     Dosage: 10/650 MG
     Route: 048
  6. SOMA [Concomitant]
     Indication: MYALGIA
     Dosage: 350 MG, EVERY 8 HOURS PRN
     Route: 048
  7. IBUPROFEN [Concomitant]

REACTIONS (2)
  - Deep vein thrombosis [Recovered/Resolved]
  - Pulmonary embolism [None]
